FAERS Safety Report 8261095-0 (Version None)
Quarter: 2012Q2

REPORT INFORMATION
  Report Type: 
  Country: None (occurrence: None)
  Receive Date: 20120405
  Receipt Date: 20120330
  Transmission Date: 20120825
  Serious: Yes (Hospitalization)
  Sender: FDA-Public Use
  Company Number: PHHY2012AR027593

PATIENT
  Sex: Female

DRUGS (1)
  1. DIOVAN [Suspect]
     Indication: HYPERTENSION
     Dosage: 160 MG, QD
     Dates: end: 20120222

REACTIONS (3)
  - MITRAL VALVE DISEASE [None]
  - TRICUSPID VALVE DISEASE [None]
  - PULMONARY OEDEMA [None]
